FAERS Safety Report 14747711 (Version 1)
Quarter: 2018Q2

REPORT INFORMATION
  Report Type: Spontaneous
  Country: IE (occurrence: IE)
  Receive Date: 20180411
  Receipt Date: 20180411
  Transmission Date: 20180711
  Serious: Yes (Death, Other)
  Sender: FDA-Public Use
  Company Number: IE-PURDUE-GBR-2018-0054706

PATIENT
  Age: 83 Year
  Sex: Male

DRUGS (3)
  1. INSULIN [Concomitant]
     Active Substance: INSULIN NOS
     Indication: TYPE 2 DIABETES MELLITUS
  2. BUPRENORPHINE. [Suspect]
     Active Substance: BUPRENORPHINE
     Indication: ISCHAEMIC LIMB PAIN
     Dosage: 10 MCG, Q1H
     Route: 062
  3. PROMETHAZINE [Concomitant]
     Active Substance: PROMETHAZINE\PROMETHAZINE HYDROCHLORIDE
     Indication: ADJUSTMENT DISORDER
     Dosage: 25 MG, DAILY AT NIGHT

REACTIONS (5)
  - Respiratory rate decreased [Recovering/Resolving]
  - Myoclonus [Recovering/Resolving]
  - Death [Fatal]
  - Toxicity to various agents [Recovering/Resolving]
  - Somnolence [Recovering/Resolving]
